FAERS Safety Report 17685810 (Version 2)
Quarter: 2021Q2

REPORT INFORMATION
  Report Type: Spontaneous
  Country: US (occurrence: US)
  Receive Date: 20200420
  Receipt Date: 20210416
  Transmission Date: 20210716
  Serious: Yes (Other)
  Sender: FDA-Public Use
  Company Number: US-ASTRAZENECA-2020SE50616

PATIENT
  Age: 20740 Day
  Sex: Female

DRUGS (36)
  1. COLCRYS [Concomitant]
     Active Substance: COLCHICINE
  2. LISINOPRIL. [Concomitant]
     Active Substance: LISINOPRIL
     Dates: start: 20110706
  3. ADVIL [Concomitant]
     Active Substance: IBUPROFEN
  4. TRAMADOL. [Concomitant]
     Active Substance: TRAMADOL
  5. DICYCLOMINE [Concomitant]
     Active Substance: DICYCLOMINE HYDROCHLORIDE
  6. PROBENECID. [Concomitant]
     Active Substance: PROBENECID
  7. CIPROFLOXACIN. [Concomitant]
     Active Substance: CIPROFLOXACIN
     Dates: start: 20070813
  8. MECLIZINE [Concomitant]
     Active Substance: MECLIZINE HYDROCHLORIDE
  9. BENTYL [Concomitant]
     Active Substance: DICYCLOMINE HYDROCHLORIDE
  10. PRILOSEC [Suspect]
     Active Substance: OMEPRAZOLE MAGNESIUM
     Route: 048
     Dates: start: 200602, end: 201201
  11. PREVACID [Suspect]
     Active Substance: LANSOPRAZOLE
     Route: 065
     Dates: start: 200602, end: 201201
  12. AVANDIA [Concomitant]
     Active Substance: ROSIGLITAZONE MALEATE
     Dates: start: 20070205
  13. HYDROCODONE [Concomitant]
     Active Substance: HYDROCODONE
     Dates: start: 20070813
  14. ALBUTEROL. [Concomitant]
     Active Substance: ALBUTEROL
  15. CLOTRIMAZOL [Concomitant]
     Active Substance: CLOTRIMAZOLE
  16. PREVACID [Suspect]
     Active Substance: LANSOPRAZOLE
     Route: 065
     Dates: start: 20090724
  17. ROPINIROLE. [Concomitant]
     Active Substance: ROPINIROLE
  18. LYRICA [Concomitant]
     Active Substance: PREGABALIN
  19. AZITHROMYCIN ANHYDROUS. [Concomitant]
     Active Substance: AZITHROMYCIN ANHYDROUS
     Dates: start: 20070813
  20. DEXILANT [Suspect]
     Active Substance: DEXLANSOPRAZOLE
     Route: 065
     Dates: start: 200602, end: 201201
  21. PREVACID [Suspect]
     Active Substance: LANSOPRAZOLE
     Route: 065
     Dates: start: 20060806
  22. PRAVASTATIN. [Concomitant]
     Active Substance: PRAVASTATIN
  23. ALLOPURINOL. [Concomitant]
     Active Substance: ALLOPURINOL
  24. LORATADIN [Concomitant]
     Active Substance: LORATADINE
  25. NOVOLOG [Concomitant]
     Active Substance: INSULIN ASPART
  26. TELMISARTAN. [Concomitant]
     Active Substance: TELMISARTAN
  27. PREVACID [Suspect]
     Active Substance: LANSOPRAZOLE
     Route: 065
     Dates: start: 20070205
  28. LOTEMAX [Concomitant]
     Active Substance: LOTEPREDNOL ETABONATE
  29. DEXILANT [Suspect]
     Active Substance: DEXLANSOPRAZOLE
     Route: 065
     Dates: start: 20110503
  30. FUROSEMIDE. [Concomitant]
     Active Substance: FUROSEMIDE
  31. BETAMETHASONE. [Concomitant]
     Active Substance: BETAMETHASONE
  32. LEVOTHYROXINE. [Concomitant]
     Active Substance: LEVOTHYROXINE
  33. NORVASC [Concomitant]
     Active Substance: AMLODIPINE BESYLATE
  34. GLYBURIDE. [Concomitant]
     Active Substance: GLYBURIDE
     Dates: start: 20070322
  35. LIDOCAINE. [Concomitant]
     Active Substance: LIDOCAINE
  36. METHYLPREDNISOLONE. [Concomitant]
     Active Substance: METHYLPREDNISOLONE

REACTIONS (2)
  - Acute kidney injury [Unknown]
  - Chronic kidney disease [Unknown]

NARRATIVE: CASE EVENT DATE: 20130619
